FAERS Safety Report 13288071 (Version 2)
Quarter: 2017Q4

REPORT INFORMATION
  Report Type: Spontaneous
  Country: FR (occurrence: FR)
  Receive Date: 20170302
  Receipt Date: 20171103
  Transmission Date: 20180320
  Serious: Yes (Other)
  Sender: FDA-Public Use
  Company Number: FR-LUPIN PHARMACEUTICALS INC.-2017-00863

PATIENT
  Age: 39 Year
  Sex: Male

DRUGS (1)
  1. OMEPRAZOLE. [Suspect]
     Active Substance: OMEPRAZOLE
     Indication: HELICOBACTER INFECTION
     Dosage: UNK
     Route: 065
     Dates: start: 2015

REACTIONS (2)
  - Therapeutic product cross-reactivity [Unknown]
  - Type I hypersensitivity [Recovering/Resolving]

NARRATIVE: CASE EVENT DATE: 2015
